FAERS Safety Report 7719492-5 (Version None)
Quarter: 2011Q3

REPORT INFORMATION
  Report Type: 
  Country: None (occurrence: None)
  Receive Date: 20110830
  Receipt Date: 20110817
  Transmission Date: 20111222
  Serious: Yes (Other)
  Sender: FDA-Public Use
  Company Number: KR-MYLANLABS-2011S1017612

PATIENT
  Age: 15 Year
  Sex: Male

DRUGS (1)
  1. VALPROIC ACID [Suspect]
     Indication: JUVENILE MYOCLONIC EPILEPSY
     Dosage: 20 MG/KG/DAY
     Route: 065

REACTIONS (1)
  - DIFFUSE ALVEOLAR DAMAGE [None]
